FAERS Safety Report 4766184-0 (Version None)
Quarter: 2005Q3

REPORT INFORMATION
  Report Type: 
  Country: None (occurrence: None)
  Receive Date: 20050912
  Receipt Date: 20050812
  Transmission Date: 20060218
  Serious: Yes (Death, Hospitalization, Other)
  Sender: FDA-Public Use
  Company Number: GB-BRISTOL-MYERS SQUIBB COMPANY-13078357

PATIENT
  Age: 21 Year
  Sex: Male

DRUGS (3)
  1. DUTONIN [Suspect]
     Indication: DEPRESSION
     Route: 048
     Dates: start: 20020212, end: 20030424
  2. THIAMINE [Concomitant]
  3. STELAZINE [Concomitant]
     Route: 048

REACTIONS (3)
  - HEPATIC FAILURE [None]
  - HEPATIC STEATOSIS [None]
  - OVERDOSE [None]
